FAERS Safety Report 9814666 (Version 2)
Quarter: 2014Q1

REPORT INFORMATION
  Report Type: Spontaneous
  Country: GB (occurrence: GB)
  Receive Date: 20140113
  Receipt Date: 20140207
  Transmission Date: 20141002
  Serious: Yes (Other)
  Sender: FDA-Public Use
  Company Number: GB-IPSEN BIOPHARMACEUTICALS, INC.-2014-0077

PATIENT
  Age: 69 Year
  Sex: Female

DRUGS (4)
  1. AZZALURE [Suspect]
     Indication: SKIN WRINKLING
     Dosage: NOT REPORTED
     Route: 030
     Dates: start: 20131218, end: 20131218
  2. AZZALURE [Suspect]
     Indication: OFF LABEL USE
  3. EMERVEL TOUCH [Suspect]
     Indication: PRODUCT USED FOR UNKNOWN INDICATION
     Dosage: NOT REPORTED
     Route: 065
  4. RESTYLANE [Suspect]
     Indication: PRODUCT USED FOR UNKNOWN INDICATION
     Dosage: NOT REPORTED
     Route: 065

REACTIONS (4)
  - Cellulitis [Recovered/Resolved]
  - Eye swelling [Recovered/Resolved]
  - Periorbital oedema [Recovered/Resolved]
  - Erythema [Recovered/Resolved]
